FAERS Safety Report 23682828 (Version 1)
Quarter: 2024Q1

REPORT INFORMATION
  Report Type: Spontaneous
  Country: AR (occurrence: AR)
  Receive Date: 20240328
  Receipt Date: 20240328
  Transmission Date: 20240410
  Serious: Yes (Hospitalization, Other)
  Sender: FDA-Public Use
  Company Number: AR-MYLANLABS-2024M1028366

PATIENT
  Sex: Female

DRUGS (1)
  1. NEURONTIN [Suspect]
     Active Substance: GABAPENTIN
     Indication: Pain
     Dosage: 300 MILLIGRAM, TID
     Route: 065

REACTIONS (7)
  - Biliary colic [Unknown]
  - Internal haemorrhage [Unknown]
  - Ventricular extrasystoles [Unknown]
  - Hepatitis [Unknown]
  - Angina unstable [Unknown]
  - Gastrointestinal disorder [Unknown]
  - Abdominal pain [Unknown]
